FAERS Safety Report 14693943 (Version 1)
Quarter: 2018Q1

REPORT INFORMATION
  Report Type: Spontaneous
  Country: US (occurrence: US)
  Receive Date: 20180329
  Receipt Date: 20180329
  Transmission Date: 20180509
  Serious: No
  Sender: FDA-Public Use
  Company Number: US-PFIZER INC-2018128380

PATIENT
  Age: 76 Year
  Sex: Male
  Weight: 82 kg

DRUGS (3)
  1. BETAMETHASONE. [Concomitant]
     Active Substance: BETAMETHASONE
     Indication: RASH
     Dosage: TOPICAL
     Route: 061
  2. PROTOPIC [Concomitant]
     Active Substance: TACROLIMUS
     Indication: RASH
     Dosage: TOPICAL
     Route: 061
  3. EUCRISA [Suspect]
     Active Substance: CRISABOROLE
     Indication: RASH
     Dosage: APPLY LIGHTLY TOPICALLY 3 OR 4 TIMES A DAY; MORE LIKE THREE
     Route: 061
     Dates: start: 201801, end: 201801

REACTIONS (1)
  - Drug ineffective for unapproved indication [Unknown]

NARRATIVE: CASE EVENT DATE: 201801
